FAERS Safety Report 18068124 (Version 1)
Quarter: 2020Q3

REPORT INFORMATION
  Report Type: Spontaneous
  Country: US (occurrence: US)
  Receive Date: 20200724
  Receipt Date: 20200724
  Transmission Date: 20201103
  Serious: No
  Sender: FDA-Public Use
  Company Number: US-PERRIGO-20US008010

PATIENT
  Sex: Female
  Weight: 58.96 kg

DRUGS (2)
  1. FLUOCINOLONE ACETONIDE. [Suspect]
     Active Substance: FLUOCINOLONE ACETONIDE
     Dosage: 2 TO 3 DROPS, PRN
     Route: 001
     Dates: start: 20200527, end: 20200530
  2. FLUOCINOLONE ACETONIDE. [Suspect]
     Active Substance: FLUOCINOLONE ACETONIDE
     Indication: MENIERE^S DISEASE
     Dosage: UNKNOWN, UNKNOWN
     Route: 061
     Dates: start: 20200527, end: 20200530

REACTIONS (2)
  - Accidental exposure to product [Recovered/Resolved]
  - Off label use [Recovered/Resolved]

NARRATIVE: CASE EVENT DATE: 20200527
